FAERS Safety Report 5169818-4 (Version None)
Quarter: 2006Q4

REPORT INFORMATION
  Report Type: 
  Country: None (occurrence: None)
  Receive Date: 20061212
  Receipt Date: 20061204
  Transmission Date: 20070319
  Serious: Yes (Life-Threatening)
  Sender: FDA-Public Use
  Company Number: FR-BRISTOL-MYERS SQUIBB COMPANY-13601018

PATIENT
  Age: 61 Year
  Sex: Male

DRUGS (8)
  1. AXEPIM INJ [Suspect]
     Indication: LUNG DISORDER
     Route: 042
     Dates: start: 20061110, end: 20061120
  2. ROVAMYCINE [Suspect]
     Indication: LUNG DISORDER
     Route: 042
     Dates: start: 20061110, end: 20061120
  3. RULID [Suspect]
     Indication: LUNG DISORDER
     Route: 048
     Dates: start: 20061110, end: 20061120
  4. TEGELINE [Concomitant]
     Route: 042
     Dates: start: 20030101
  5. ATROVENT [Concomitant]
  6. BRICANYL [Concomitant]
  7. LOVENOX [Concomitant]
  8. NEXIUM [Concomitant]

REACTIONS (1)
  - MYOCARDITIS [None]
